FAERS Safety Report 9517826 (Version 3)
Quarter: 2013Q4

REPORT INFORMATION
  Report Type: Spontaneous
  Country: US (occurrence: US)
  Receive Date: 20130912
  Receipt Date: 20131106
  Transmission Date: 20140711
  Serious: Yes (Other)
  Sender: FDA-Public Use
  Company Number: US-BRISTOL-MYERS SQUIBB COMPANY-19227768

PATIENT
  Sex: Female

DRUGS (1)
  1. ABILIFY [Suspect]
     Dosage: 1DF: 1 PILL

REACTIONS (6)
  - Hypersensitivity [Unknown]
  - Hypoaesthesia [Unknown]
  - Muscle disorder [Unknown]
  - Nausea [Unknown]
  - Pain in extremity [Unknown]
  - Insomnia [Unknown]
